FAERS Safety Report 8172745-1 (Version None)
Quarter: 2012Q1

REPORT INFORMATION
  Report Type: 
  Country: None (occurrence: None)
  Receive Date: 20120223
  Receipt Date: 20120216
  Transmission Date: 20120608
  Serious: Yes (Hospitalization, Other)
  Sender: FDA-Public Use
  Company Number: CL-389-2012

PATIENT
  Age: 23 Year
  Sex: Male

DRUGS (4)
  1. FENTANYL [Suspect]
     Indication: ANAESTHESIA
     Dosage: EPIDURAL
     Route: 008
  2. MIDAZOLAM HCL [Suspect]
     Indication: ANAESTHESIA
     Dosage: EPIDURAL
     Route: 008
  3. BUPIVACAINE UNK [Suspect]
     Indication: ANAESTHESIA
     Dosage: EPIDURAL
     Route: 008
  4. REMIFENTADYL UNK [Suspect]
     Indication: ANAESTHESIA
     Dosage: EPIDURAL
     Route: 008

REACTIONS (5)
  - ACUTE RESPIRATORY DISTRESS SYNDROME [None]
  - OFF LABEL USE [None]
  - AGITATION [None]
  - RESPIRATORY ALKALOSIS [None]
  - SINUS TACHYCARDIA [None]
